FAERS Safety Report 7215195-4 (Version None)
Quarter: 2011Q1

REPORT INFORMATION
  Report Type: 
  Country: None (occurrence: None)
  Receive Date: 20110107
  Receipt Date: 20101130
  Transmission Date: 20110831
  Serious: No
  Sender: FDA-Public Use
  Company Number: A0887606A

PATIENT
  Age: 77 Year
  Sex: Female

DRUGS (5)
  1. LOVAZA [Suspect]
     Dosage: 2CAP TWICE PER DAY
     Route: 048
     Dates: start: 20100810, end: 20101018
  2. OMEPRAZOLE [Concomitant]
  3. EVISTA [Concomitant]
  4. LEVOTHYROXINE [Concomitant]
  5. DIAZEPAM [Concomitant]

REACTIONS (14)
  - PYREXIA [None]
  - OROPHARYNGEAL PAIN [None]
  - RASH [None]
  - ERUCTATION [None]
  - URTICARIA [None]
  - PHOTOSENSITIVITY REACTION [None]
  - RASH ERYTHEMATOUS [None]
  - SINUSITIS [None]
  - INFLUENZA LIKE ILLNESS [None]
  - DRUG HYPERSENSITIVITY [None]
  - PHARYNGITIS [None]
  - DRY EYE [None]
  - PRURITUS [None]
  - EAR PAIN [None]
